FAERS Safety Report 5120141-3 (Version None)
Quarter: 2006Q4

REPORT INFORMATION
  Report Type: 
  Country: None (occurrence: None)
  Receive Date: 20061002
  Receipt Date: 20061002
  Transmission Date: 20070319
  Serious: Yes (Hospitalization)
  Sender: FDA-Public Use
  Company Number: None

PATIENT
  Age: 36 Year
  Sex: Female

DRUGS (1)
  1. ZIPRASIDONE HCL [Suspect]
     Dosage: 40 MG BID PO
     Route: 048
     Dates: start: 20060601, end: 20060619

REACTIONS (2)
  - MUSCLE SPASMS [None]
  - YAWNING [None]
